FAERS Safety Report 7934266-8 (Version None)
Quarter: 2011Q4

REPORT INFORMATION
  Report Type: 
  Country: None (occurrence: None)
  Receive Date: 20111122
  Receipt Date: 20111114
  Transmission Date: 20120403
  Serious: Yes (Hospitalization)
  Sender: FDA-Public Use
  Company Number: BR-SANOFI-AVENTIS-2011SA075072

PATIENT
  Age: 44 Year
  Sex: Female
  Weight: 85 kg

DRUGS (7)
  1. AMLODIPINE [Concomitant]
     Dates: start: 20100701
  2. DIOVAN [Concomitant]
     Dates: start: 20100701
  3. EZETIMIBE [Concomitant]
     Dates: start: 20110401
  4. CLOPIDOGREL BISULFATE [Suspect]
     Indication: ACUTE CORONARY SYNDROME
     Route: 065
     Dates: start: 20110816
  5. ATORVASTATIN [Concomitant]
     Dates: start: 20100701
  6. METOPROLOL SUCCINATE [Concomitant]
     Dates: start: 20100701
  7. ISOSORBIDE MONONITRATE [Concomitant]
     Dates: start: 20100701

REACTIONS (1)
  - CHEST PAIN [None]
